FAERS Safety Report 7137350-4 (Version None)
Quarter: 2010Q4

REPORT INFORMATION
  Report Type: 
  Country: None (occurrence: None)
  Receive Date: 20101206
  Receipt Date: 20090625
  Transmission Date: 20110411
  Serious: Yes (Death, Hospitalization, Other)
  Sender: FDA-Public Use
  Company Number: US-ACTELION-A-US2008-20457

PATIENT

DRUGS (2)
  1. BOSENTAN TABLET UNKNOWN MG [Suspect]
     Indication: PULMONARY ARTERIAL HYPERTENSION
     Route: 048
     Dates: start: 20080327, end: 20090613
  2. REVATIO [Concomitant]

REACTIONS (11)
  - AMNESIA [None]
  - AMYLOIDOSIS [None]
  - COUGH [None]
  - DEATH [None]
  - DYSPNOEA [None]
  - FLUID OVERLOAD [None]
  - HYPERTENSION [None]
  - ORGAN FAILURE [None]
  - PROTEIN URINE PRESENT [None]
  - RESPIRATORY DISORDER [None]
  - RESPIRATORY FAILURE [None]
